FAERS Safety Report 13195168 (Version 2)
Quarter: 2017Q1

REPORT INFORMATION
  Report Type: Report from Study
  Country: None (occurrence: TW)
  Receive Date: 20170207
  Receipt Date: 20170223
  Transmission Date: 20170428
  Serious: Yes (Other)
  Sender: FDA-Public Use
  Company Number: TW-ABBVIE-17K-153-1859124-00

PATIENT
  Age: 57 Year
  Sex: Female
  Weight: 62 kg

DRUGS (2)
  1. HUMIRA [Suspect]
     Active Substance: ADALIMUMAB
     Indication: RHEUMATOID ARTHRITIS
     Route: 058
     Dates: start: 20151216, end: 20161019
  2. MTX [Concomitant]
     Active Substance: METHOTREXATE SODIUM
     Indication: RHEUMATOID ARTHRITIS

REACTIONS (18)
  - Electrocardiogram QT prolonged [Unknown]
  - Exostosis [Unknown]
  - Glomerular filtration rate decreased [Unknown]
  - Aspartate aminotransferase increased [Unknown]
  - Blood creatine increased [Recovering/Resolving]
  - Mean cell volume increased [Unknown]
  - Haemoglobin decreased [Unknown]
  - Haematocrit decreased [Unknown]
  - Mean cell haemoglobin increased [Unknown]
  - Osteopenia [Unknown]
  - Lung infiltration [Unknown]
  - Alanine aminotransferase increased [Recovering/Resolving]
  - Blood glucose increased [Unknown]
  - Spinal osteoarthritis [Unknown]
  - Spondylolisthesis [Recovering/Resolving]
  - Activated partial thromboplastin time shortened [Unknown]
  - Blood urea increased [Unknown]
  - Red blood cell count decreased [Unknown]

NARRATIVE: CASE EVENT DATE: 20161204
